FAERS Safety Report 12258307 (Version 1)
Quarter: 2016Q2

REPORT INFORMATION
  Report Type: Spontaneous
  Country: US (occurrence: US)
  Receive Date: 20160412
  Receipt Date: 20160412
  Transmission Date: 20160815
  Serious: Yes (Other)
  Sender: FDA-Public Use
  Company Number: US-BAYER-2016-064478

PATIENT
  Age: 58 Year
  Sex: Female
  Weight: 83.45 kg

DRUGS (3)
  1. CITRACAL PETITES [Suspect]
     Active Substance: CALCIUM CITRATE
     Indication: VITAMIN SUPPLEMENTATION
     Dosage: 2 DF, BID
     Route: 048
     Dates: start: 20160131, end: 20160324
  2. VITAMIN B NOS [Concomitant]
     Active Substance: VITAMIN B
  3. BAYER GENUINE ASPIRIN [Suspect]
     Active Substance: ASPIRIN
     Route: 048

REACTIONS (3)
  - Arterial occlusive disease [Recovered/Resolved]
  - Internal haemorrhage [None]
  - Dyspnoea [Recovered/Resolved]

NARRATIVE: CASE EVENT DATE: 20160324
